FAERS Safety Report 6345552-X (Version None)
Quarter: 2009Q3

REPORT INFORMATION
  Report Type: 
  Country: None (occurrence: None)
  Receive Date: 20090909
  Receipt Date: 20090827
  Transmission Date: 20100115
  Serious: Yes (Other)
  Sender: FDA-Public Use
  Company Number: JP-PFIZER INC-2009262415

PATIENT

DRUGS (1)
  1. GABAPEN [Suspect]
     Dosage: UNK
     Route: 048

REACTIONS (2)
  - BLOOD CREATININE INCREASED [None]
  - INFECTION [None]
